FAERS Safety Report 25048629 (Version 1)
Quarter: 2025Q1

REPORT INFORMATION
  Report Type: Spontaneous
  Country: DE (occurrence: DE)
  Receive Date: 20250307
  Receipt Date: 20250307
  Transmission Date: 20250409
  Serious: Yes (Hospitalization)
  Sender: CELLTRION
  Company Number: DE-CELLTRION INC.-2024DE013603

PATIENT

DRUGS (12)
  1. INFLIXIMAB [Suspect]
     Active Substance: INFLIXIMAB
     Indication: Psoriatic arthropathy
     Dosage: 120 MG, Q2WEEKS
     Route: 058
     Dates: start: 20230426
  2. CELECOXIB [Concomitant]
     Active Substance: CELECOXIB
     Dosage: 200.00MG ONE DAY PER WEEK
     Dates: start: 20210501
  3. METHOTREXATE SODIUM [Concomitant]
     Active Substance: METHOTREXATE SODIUM
     Dosage: 17.50MG/ PER WEEK
     Route: 058
     Dates: start: 20110701
  4. ALENDRONIC ACID [Concomitant]
     Active Substance: ALENDRONIC ACID
  5. FOLIC ACID [Concomitant]
     Active Substance: FOLIC ACID
  6. KELTICAN FORTE [Concomitant]
  7. METFORMIN [Concomitant]
     Active Substance: METFORMIN HYDROCHLORIDE
  8. METOPROLOL [Concomitant]
     Active Substance: METOPROLOL
  9. ALBUTEROL [Concomitant]
     Active Substance: ALBUTEROL
  10. ENALAPRIL [Concomitant]
     Active Substance: ENALAPRIL
  11. LERCANIDIPINE [Concomitant]
     Active Substance: LERCANIDIPINE
  12. VITAMIN D NOS [Concomitant]
     Active Substance: CHOLECALCIFEROL\ERGOCALCIFEROL

REACTIONS (4)
  - Panic attack [Recovered/Resolved]
  - Dyspnoea [Recovered/Resolved]
  - Upper respiratory tract infection [Unknown]
  - Sinusitis [Unknown]

NARRATIVE: CASE EVENT DATE: 20230615
